FAERS Safety Report 6803802-7 (Version None)
Quarter: 2010Q2

REPORT INFORMATION
  Report Type: 
  Country: None (occurrence: None)
  Receive Date: 20100628
  Receipt Date: 20100616
  Transmission Date: 20101027
  Serious: Yes (Other)
  Sender: FDA-Public Use
  Company Number: FR-GILEAD-2010-0029920

PATIENT
  Sex: Female
  Weight: 84 kg

DRUGS (5)
  1. VIREAD [Suspect]
     Indication: HIV INFECTION
     Dates: start: 20080101
  2. ZIAGEN [Concomitant]
     Indication: HIV INFECTION
  3. KALETRA [Concomitant]
     Indication: HIV INFECTION
  4. CARDENSIEL [Concomitant]
     Indication: HYPERTENSION
     Dates: start: 20060101
  5. ZIDOVUDINE [Concomitant]
     Indication: PROPHYLAXIS AGAINST HIV INFECTION

REACTIONS (5)
  - GESTATIONAL DIABETES [None]
  - MECONIUM IN AMNIOTIC FLUID [None]
  - PRE-ECLAMPSIA [None]
  - PREGNANCY [None]
  - ULTRASOUND SCAN ABNORMAL [None]
